FAERS Safety Report 5823945-4 (Version None)
Quarter: 2008Q3

REPORT INFORMATION
  Report Type: 
  Country: None (occurrence: None)
  Receive Date: 20080724
  Receipt Date: 20080709
  Transmission Date: 20090109
  Serious: Yes (Hospitalization, Other)
  Sender: FDA-Public Use
  Company Number: 236467J08USA

PATIENT
  Age: 37 Year
  Sex: Female
  Weight: 99.7913 kg

DRUGS (4)
  1. REBIF [Suspect]
     Indication: MULTIPLE SCLEROSIS
     Dosage: 44 MCG, 3 IN 1 WEEKS, SUBCUTANEOUS
     Route: 058
     Dates: start: 20080314, end: 20080707
  2. PROVIGIL [Suspect]
     Indication: FATIGUE
     Dosage: NOT REPORTED, 4 IN 1 WEEKS, NOT REPORTED
     Dates: start: 20080627, end: 20080708
  3. MOTRIN [Suspect]
     Indication: CHILLS
     Dosage: NOT REPORTED, NOT REPORTED, NOT REPORTED
     Dates: start: 20080101, end: 20080708
  4. MOTRIN [Suspect]
     Indication: PREMEDICATION
     Dosage: NOT REPORTED, NOT REPORTED, NOT REPORTED
     Dates: start: 20080101, end: 20080708

REACTIONS (13)
  - BLOOD PRESSURE DECREASED [None]
  - CYANOSIS [None]
  - DIZZINESS [None]
  - ERYTHEMA MULTIFORME [None]
  - FATIGUE [None]
  - LIP SWELLING [None]
  - NAUSEA [None]
  - PAIN [None]
  - PRURITUS GENERALISED [None]
  - RASH GENERALISED [None]
  - STEVENS-JOHNSON SYNDROME [None]
  - URTICARIA [None]
  - WHITE BLOOD CELL COUNT INCREASED [None]
